FAERS Safety Report 25456478 (Version 1)
Quarter: 2025Q2

REPORT INFORMATION
  Report Type: Report from Study
  Country: MY (occurrence: MY)
  Receive Date: 20250619
  Receipt Date: 20250619
  Transmission Date: 20250717
  Serious: Yes (Other)
  Sender: AMGEN
  Company Number: MY-AMGEN-MYSSP2025118119

PATIENT

DRUGS (1)
  1. TARLATAMAB [Suspect]
     Active Substance: TARLATAMAB
     Indication: Product used for unknown indication
     Route: 065

REACTIONS (1)
  - Tumour pseudoprogression [Unknown]
